FAERS Safety Report 9958390 (Version 1)
Quarter: 2014Q1

REPORT INFORMATION
  Report Type: Report from Study
  Country: US (occurrence: US)
  Receive Date: 20140305
  Receipt Date: 20140305
  Transmission Date: 20141002
  Serious: Yes (Other)
  Sender: FDA-Public Use
  Company Number: US-ROCHE-1345802

PATIENT
  Sex: Female

DRUGS (8)
  1. LUCENTIS [Suspect]
     Indication: AGE-RELATED MACULAR DEGENERATION
     Dosage: OD (RIGHT EYE)
     Route: 050
     Dates: start: 20110623
  2. AVASTIN [Suspect]
     Indication: AGE-RELATED MACULAR DEGENERATION
     Dosage: OS (LEFT EYE)
     Route: 065
  3. AMBIEN [Concomitant]
  4. ASA [Concomitant]
     Dosage: 81
     Route: 065
  5. AVAPRO [Concomitant]
  6. FEMARA [Concomitant]
  7. FISH OIL [Concomitant]
  8. IBUPROFEN [Concomitant]

REACTIONS (7)
  - Retinal oedema [Unknown]
  - Visual acuity reduced [Unknown]
  - Metamorphopsia [Unknown]
  - Subretinal fluid [Unknown]
  - Detachment of retinal pigment epithelium [Unknown]
  - Choroidal neovascularisation [Unknown]
  - Off label use [Unknown]
